FAERS Safety Report 12216844 (Version 10)
Quarter: 2019Q4

REPORT INFORMATION
  Report Type: Report from Study
  Country: GB (occurrence: GB)
  Receive Date: 20160329
  Receipt Date: 20191113
  Transmission Date: 20200122
  Serious: Yes (Hospitalization)
  Sender: FDA-Public Use
  Company Number: GB-ROCHE-1689461

PATIENT
  Age: 54 Year
  Sex: Female

DRUGS (47)
  1. DEXAMETHASONE. [Concomitant]
     Active Substance: DEXAMETHASONE
     Route: 065
     Dates: start: 20160204, end: 20160218
  2. LANSOPRAZOLE. [Concomitant]
     Active Substance: LANSOPRAZOLE
     Route: 065
     Dates: start: 20131129
  3. CYCLIZINE [Concomitant]
     Active Substance: CYCLIZINE
     Route: 065
     Dates: start: 20160204, end: 20160218
  4. VITAMIN D3 [Concomitant]
     Active Substance: CHOLECALCIFEROL
     Route: 065
     Dates: start: 20160208
  5. PERINDOPRIL [Concomitant]
     Active Substance: PERINDOPRIL
     Route: 065
     Dates: start: 20140828, end: 20141113
  6. RAMIPRIL. [Concomitant]
     Active Substance: RAMIPRIL
     Route: 065
     Dates: start: 20160914, end: 20161004
  7. DIFFLAM [Concomitant]
     Active Substance: BENZYDAMINE HYDROCHLORIDE
     Route: 065
     Dates: start: 20140402, end: 20140423
  8. VENTOLIN [Concomitant]
     Active Substance: ALBUTEROL SULFATE
     Route: 065
     Dates: start: 201603
  9. IPRATROPIUM [Concomitant]
     Active Substance: IPRATROPIUM
     Route: 065
     Dates: start: 201603
  10. TRASTUZUMAB. [Suspect]
     Active Substance: TRASTUZUMAB
     Indication: HER-2 POSITIVE BREAST CANCER
     Dosage: LOADING DOSE
     Route: 042
     Dates: start: 20131017
  11. CORSODYL [Concomitant]
     Active Substance: CHLORHEXIDINE GLUCONATE
     Route: 065
     Dates: start: 20140402
  12. LANSOPRAZOLE. [Concomitant]
     Active Substance: LANSOPRAZOLE
     Route: 065
     Dates: start: 20160209, end: 20160211
  13. LAXIDO [Concomitant]
     Active Substance: POLYETHYLENE GLYCOL 3350\POTASSIUM CHLORIDE\SODIUM BICARBONATE\SODIUM CHLORIDE
     Dosage: DOSE: 1-3 SACHETS
     Route: 065
     Dates: start: 201502, end: 20150703
  14. DERMOVATE [Concomitant]
     Active Substance: CLOBETASOL
     Route: 065
     Dates: start: 20151021
  15. MIRTAZAPINE. [Concomitant]
     Active Substance: MIRTAZAPINE
     Route: 065
     Dates: start: 20160208, end: 20160210
  16. OXYGEN. [Concomitant]
     Active Substance: OXYGEN
     Route: 065
     Dates: start: 20160102, end: 20160105
  17. DOXYCYCLINE. [Concomitant]
     Active Substance: DOXYCYCLINE
     Route: 065
     Dates: start: 20161223, end: 20161229
  18. PERTUZUMAB. [Suspect]
     Active Substance: PERTUZUMAB
     Dosage: MAINTENACE DOSE; THERAPY INTERRUPTED?DATE OF LAST DOSE PRIOR TO PNEUMONIA : 18/DEC/2015, DATE OF LAS
     Route: 042
     Dates: end: 20160226
  19. NEULASTA [Concomitant]
     Active Substance: PEGFILGRASTIM
     Indication: BLOOD DISORDER PROPHYLAXIS
     Route: 065
     Dates: start: 20131018
  20. NORTRIPTYLINE [Concomitant]
     Active Substance: NORTRIPTYLINE
     Route: 065
     Dates: start: 20140625, end: 20140826
  21. HYDROCORTISONE. [Concomitant]
     Active Substance: HYDROCORTISONE
     Route: 065
     Dates: start: 20150731
  22. MILK THISTLE [SILYBUM MARIANUM] [Concomitant]
     Active Substance: DIETARY SUPPLEMENT\HERBALS\MILK THISTLE
     Route: 065
     Dates: start: 20160209, end: 20160211
  23. FLEXITOL [Concomitant]
     Route: 065
     Dates: start: 20150617
  24. DOCETAXEL. [Suspect]
     Active Substance: DOCETAXEL
     Indication: HER-2 POSITIVE BREAST CANCER
     Dosage: DATE OF LAST DOSE PRIOR TO COMPLICATIONS OF RECENT PNEUMONIA, RIGHT LUNG CONSOLIDATION, PLURAL EFFUS
     Route: 042
     Dates: start: 20131017
  25. CYCLIZINE [Concomitant]
     Active Substance: CYCLIZINE
     Route: 065
     Dates: start: 20151105, end: 20151123
  26. CALCICHEW D3 FORTE [Concomitant]
     Active Substance: CALCIUM\CHOLECALCIFEROL
     Route: 065
     Dates: start: 20160209
  27. DEXAMETHASONE. [Concomitant]
     Active Substance: DEXAMETHASONE
     Indication: PROPHYLAXIS
     Dosage: DOSE: 16 M
     Route: 065
     Dates: start: 20131016
  28. NORTRIPTYLINE [Concomitant]
     Active Substance: NORTRIPTYLINE
     Route: 065
     Dates: start: 20160208, end: 20160210
  29. AMOXYCILLIN [AMOXICILLIN] [Concomitant]
     Route: 065
     Dates: start: 20160102, end: 20160108
  30. COCODAMOL [Concomitant]
     Active Substance: ACETAMINOPHEN\CODEINE PHOSPHATE
     Route: 065
     Dates: start: 20140423, end: 20140704
  31. DIAZEPAM. [Concomitant]
     Active Substance: DIAZEPAM
     Route: 065
     Dates: start: 20160111
  32. MIRTAZAPINE. [Concomitant]
     Active Substance: MIRTAZAPINE
     Route: 065
     Dates: start: 199806
  33. TIMODINE [BENZALKONIUM CHLORIDE;DIMETICONE;HYDROCORTISONE;NYSTATIN] [Concomitant]
     Route: 065
     Dates: start: 20150408, end: 20150506
  34. RAMIPRIL. [Concomitant]
     Active Substance: RAMIPRIL
     Route: 065
     Dates: start: 20161005
  35. PERTUZUMAB. [Suspect]
     Active Substance: PERTUZUMAB
     Dosage: THERAPY RESTARTED
     Route: 042
     Dates: start: 20160317
  36. VITAMIN C [Concomitant]
     Active Substance: ASCORBIC ACID
     Route: 065
     Dates: start: 20160209
  37. RANITIDINE. [Concomitant]
     Active Substance: RANITIDINE
     Route: 065
     Dates: start: 20160102, end: 20160105
  38. SALBUTAMOL [Concomitant]
     Active Substance: ALBUTEROL
     Route: 065
     Dates: start: 201603
  39. AMOXYCILLIN [AMOXICILLIN] [Concomitant]
     Dosage: 500 MG
     Route: 065
     Dates: start: 20140402, end: 20140409
  40. COCODAMOL [Concomitant]
     Active Substance: ACETAMINOPHEN\CODEINE PHOSPHATE
     Dosage: 36/1000
     Route: 065
     Dates: start: 20160208, end: 20160208
  41. LAXIDO [Concomitant]
     Active Substance: POLYETHYLENE GLYCOL 3350\POTASSIUM CHLORIDE\SODIUM BICARBONATE\SODIUM CHLORIDE
     Route: 065
     Dates: start: 20150408, end: 20150705
  42. DENOSUMAB [Concomitant]
     Active Substance: DENOSUMAB
     Route: 065
     Dates: start: 20130820
  43. PERTUZUMAB. [Suspect]
     Active Substance: PERTUZUMAB
     Indication: HER-2 POSITIVE BREAST CANCER
     Dosage: LOADING DOSE?DATE OF LAST DOSE PRIOR TO PROBABLE INFECTIOUS PLEURAL EFFUSION: 17/MAR/2016,
     Route: 042
     Dates: start: 20131017
  44. TRASTUZUMAB. [Suspect]
     Active Substance: TRASTUZUMAB
     Dosage: MAINTENANCE DOSE, DATE OF LAST DOSE PRIOR TO FIRST EPISODE OF PNEUMONIA : 18/DEC/2015?DATE OF LAST D
     Route: 042
  45. DEXAMETHASONE. [Concomitant]
     Active Substance: DEXAMETHASONE
     Dosage: DOSE: 0.5-10 MICROGRAMS
     Route: 065
     Dates: start: 20151123
  46. NORTRIPTYLINE [Concomitant]
     Active Substance: NORTRIPTYLINE
     Route: 065
     Dates: start: 20140826
  47. DALTEPARIN [Concomitant]
     Active Substance: DALTEPARIN
     Route: 065
     Dates: start: 20160208, end: 20160210

REACTIONS (2)
  - Pneumonia [Recovered/Resolved]
  - Pneumonia [Recovered/Resolved]

NARRATIVE: CASE EVENT DATE: 20160102
